FAERS Safety Report 5059084-2 (Version None)
Quarter: 2006Q3

REPORT INFORMATION
  Report Type: 
  Country: None (occurrence: None)
  Receive Date: 20060718
  Receipt Date: 20060705
  Transmission Date: 20061208
  Serious: Yes (Other)
  Sender: FDA-Public Use
  Company Number: 2006084908

PATIENT
  Age: 72 Year
  Sex: Male
  Weight: 77.1115 kg

DRUGS (2)
  1. CELEBREX [Suspect]
     Indication: ARTHRITIS
  2. BEXTRA [Suspect]
     Indication: ARTHRITIS

REACTIONS (7)
  - CARDIOMEGALY [None]
  - DEPRESSION [None]
  - FLUID RETENTION [None]
  - HEADACHE [None]
  - HYPERTENSION [None]
  - INCREASED TENDENCY TO BRUISE [None]
  - SKIN ATROPHY [None]
